FAERS Safety Report 25878589 (Version 1)
Quarter: 2025Q4

REPORT INFORMATION
  Report Type: Report from Study
  Country: EU (occurrence: EU)
  Receive Date: 20251003
  Receipt Date: 20251003
  Transmission Date: 20260118
  Serious: Yes (Hospitalization)
  Sender: AMGEN
  Company Number: EU-ABBVIE-6461831

PATIENT
  Age: 34 Year
  Sex: Male

DRUGS (35)
  1. ADALIMUMAB [Suspect]
     Active Substance: ADALIMUMAB
     Indication: Psoriasis
     Dosage: 80 MILLIGRAM, QWK
     Route: 058
     Dates: start: 20211104, end: 20211111
  2. ADALIMUMAB [Suspect]
     Active Substance: ADALIMUMAB
     Dosage: 40 MILLIGRAM, QWK
     Route: 058
     Dates: start: 20211111, end: 20220623
  3. TILDRAKIZUMAB [Suspect]
     Active Substance: TILDRAKIZUMAB
     Indication: Product used for unknown indication
     Dosage: 100 MILLIGRAM, QMO
     Route: 048
     Dates: start: 20220623, end: 20220723
  4. TILDRAKIZUMAB [Suspect]
     Active Substance: TILDRAKIZUMAB
     Dosage: 100 MILLIGRAM, Q3MO
     Route: 048
     Dates: start: 20220723
  5. CALCIPOTRIENE [Concomitant]
     Active Substance: CALCIPOTRIENE
     Indication: Psoriasis
     Dosage: 50 MCGTOPICAL SPRAY
     Dates: start: 20181220
  6. ACETAMINOPHEN\CODEINE PHOSPHATE [Concomitant]
     Active Substance: ACETAMINOPHEN\CODEINE PHOSPHATE
     Indication: Pharyngitis
     Dosage: 10 MILLIGRAM
     Route: 048
     Dates: start: 20240408, end: 20240413
  7. GETACATETIDE ACETATE [Concomitant]
     Active Substance: GETACATETIDE ACETATE
     Indication: Nasopharyngitis
     Dosage: 2 MILLIGRAM
     Dates: start: 20240720, end: 20240726
  8. DEXCHLORPHENIRAMINE MALEATE [Concomitant]
     Active Substance: DEXCHLORPHENIRAMINE MALEATE
     Indication: Nasopharyngitis
     Dosage: 2 MILLIGRAM
     Route: 048
     Dates: start: 20240720, end: 20240726
  9. BETAMETHASONE [Concomitant]
     Active Substance: BETAMETHASONE
     Indication: Psoriasis
     Dosage: 500 MCGTOPICAL SPRAY
  10. DEXKETOPROFEN [Concomitant]
     Active Substance: DEXKETOPROFEN
     Indication: Pain
     Dosage: 50 MILLIGRAM, QD
     Route: 048
     Dates: start: 20200421
  11. ACETAMINOPHEN [Concomitant]
     Active Substance: ACETAMINOPHEN
     Indication: Nasopharyngitis
     Dosage: 650 MILLIGRAM
     Route: 048
     Dates: start: 20240408, end: 20240413
  12. ACETAMINOPHEN [Concomitant]
     Active Substance: ACETAMINOPHEN
     Indication: Purulence
     Dosage: 650 MILLIGRAM
     Route: 048
     Dates: start: 20231214, end: 20231226
  13. ACETAMINOPHEN [Concomitant]
     Active Substance: ACETAMINOPHEN
     Indication: Pharyngitis
     Dosage: 1 MILLIGRAM
     Route: 048
     Dates: start: 20240207, end: 20240220
  14. ACETAMINOPHEN [Concomitant]
     Active Substance: ACETAMINOPHEN
     Indication: Tonsillitis
     Dosage: 650 MILLIGRAM
     Route: 048
     Dates: start: 20240414, end: 20240415
  15. CODEINE [Concomitant]
     Active Substance: CODEINE
     Indication: Nasopharyngitis
     Dosage: 10 MILLIGRAM
     Route: 048
     Dates: start: 20231214, end: 20231226
  16. CODEINE [Concomitant]
     Active Substance: CODEINE
     Indication: Pharyngitis
     Dosage: 10 MILLIGRAM
     Route: 048
     Dates: start: 20240408, end: 20240415
  17. ASCORBIC ACID [Concomitant]
     Active Substance: ASCORBIC ACID
     Indication: Nasopharyngitis
     Dosage: 500 MILLIGRAM
     Route: 048
     Dates: start: 20240408, end: 20240413
  18. ASCORBIC ACID [Concomitant]
     Active Substance: ASCORBIC ACID
     Indication: Pharyngitis
     Dosage: 500 MILLIGRAM
     Route: 048
     Dates: start: 20231214, end: 20231226
  19. ASCORBIC ACID [Concomitant]
     Active Substance: ASCORBIC ACID
     Dosage: 500 MILLIGRAM
     Route: 048
     Dates: start: 20240414, end: 20240415
  20. DEFLAZACORT [Concomitant]
     Active Substance: DEFLAZACORT
     Indication: Bronchitis
     Dosage: 30 MILLIGRAM, QD
     Route: 048
     Dates: start: 20231216, end: 20231226
  21. ALBUTEROL [Concomitant]
     Active Substance: ALBUTEROL
     Indication: Bronchitis
     Dosage: 100.00 MCGRESPIRATORY
     Dates: start: 20231216, end: 20231226
  22. AMOXICILLIN [Concomitant]
     Active Substance: AMOXICILLIN
     Indication: Bronchitis
     Dosage: 600 MILLIGRAM, QD
     Route: 048
     Dates: start: 20231218, end: 20231225
  23. AMOXICILLIN [Concomitant]
     Active Substance: AMOXICILLIN
     Indication: Purulence
     Dosage: 875 MILLIGRAM
     Route: 048
     Dates: start: 20240207, end: 20240217
  24. AMOXICILLIN [Concomitant]
     Active Substance: AMOXICILLIN
     Indication: Tonsillitis
  25. BISOPROLOL [Concomitant]
     Active Substance: BISOPROLOL
     Indication: Atrial fibrillation
     Dosage: 2.5 MILLIGRAM
     Route: 048
     Dates: start: 20220712, end: 20230329
  26. BISOPROLOL [Concomitant]
     Active Substance: BISOPROLOL
     Dosage: 2.5 MILLIGRAM, QD
     Route: 048
     Dates: start: 20230330
  27. ACETYLCYSTEINE [Concomitant]
     Active Substance: ACETYLCYSTEINE
     Indication: Bronchitis
     Dosage: 600 MILLIGRAM, QD
     Route: 048
     Dates: start: 20231218, end: 20231225
  28. CLOPERASTINE [Concomitant]
     Active Substance: CLOPERASTINE
     Indication: Bronchitis
     Dosage: 10 MILLIGRAM
     Route: 048
     Dates: start: 20231226, end: 20231231
  29. RETINOL [Concomitant]
     Active Substance: RETINOL
     Indication: Bronchitis
     Dosage: 50.00 MILESIU
     Route: 048
     Dates: start: 20231226, end: 20240104
  30. IBUPROFEN [Concomitant]
     Active Substance: IBUPROFEN
     Indication: Tonsillitis
     Dosage: 650 MILLIGRAM
     Route: 048
     Dates: start: 20240207, end: 20240220
  31. IBUPROFEN [Concomitant]
     Active Substance: IBUPROFEN
     Indication: Purulence
  32. CLAVULANIC ACID [Concomitant]
     Active Substance: CLAVULANIC ACID
     Indication: Purulence
     Dosage: 125 MILLIGRAM
     Route: 048
     Dates: start: 20240207, end: 20240217
  33. CLAVULANIC ACID [Concomitant]
     Active Substance: CLAVULANIC ACID
     Indication: Tonsillitis
  34. Mepiphylline [Concomitant]
     Indication: Pharyngitis
     Dosage: 10 MILLILITER
     Route: 048
     Dates: start: 20240408, end: 20240413
  35. Mepiphylline [Concomitant]
     Dosage: 25 MILLIGRAM
     Route: 048
     Dates: start: 20240414, end: 20240415

REACTIONS (3)
  - Pulmonary hilum mass [Recovered/Resolved]
  - Atrial fibrillation [Recovered/Resolved]
  - Lymphadenopathy mediastinal [Recovered/Resolved]

NARRATIVE: CASE EVENT DATE: 20220630
